FAERS Safety Report 9625120 (Version 1)
Quarter: 2013Q4

REPORT INFORMATION
  Report Type: Spontaneous
  Country: US (occurrence: None)
  Receive Date: 20131015
  Receipt Date: 20131015
  Transmission Date: 20140711
  Serious: Yes (Hospitalization)
  Sender: FDA-Public Use
  Company Number: None

PATIENT
  Age: 73 Year
  Sex: Male
  Weight: 81.39 kg

DRUGS (14)
  1. LEUCOVORIN [Suspect]
     Indication: PANCREATIC CARCINOMA
     Route: 042
     Dates: start: 20130930
  2. FLUOROURACIL [Suspect]
     Indication: PANCREATIC CARCINOMA
     Route: 040
     Dates: start: 20130930
  3. IRINOTECAN [Suspect]
     Indication: PANCREATIC CARCINOMA
     Route: 042
     Dates: start: 20130930
  4. OXALIPLATIN [Suspect]
     Indication: PANCREATIC CARCINOMA
     Route: 042
     Dates: start: 20130930
  5. PF-04136309 [Suspect]
     Indication: PANCREATIC CARCINOMA
     Dosage: 500MG, BID, ORAL
     Route: 048
     Dates: start: 20130930, end: 20131012
  6. ASPIRIN [Concomitant]
  7. ATORVASTATIN CALCIUM [Concomitant]
  8. CLOPIDOGREL BISULFATE [Concomitant]
  9. DRONABINOL [Concomitant]
  10. ENOXAPARIN SODIUM [Concomitant]
  11. HYDROCODONE-ACETAMINOPHEN [Concomitant]
  12. LOSARTAN POTASSIUM [Concomitant]
  13. SYMBICORT [Concomitant]
  14. TERAZOSIN [Concomitant]

REACTIONS (2)
  - Febrile neutropenia [None]
  - Abdominal pain [None]
